FAERS Safety Report 19101383 (Version 1)
Quarter: 2021Q2

REPORT INFORMATION
  Report Type: Report from Study
  Country: DE (occurrence: DE)
  Receive Date: 20210407
  Receipt Date: 20210407
  Transmission Date: 20210717
  Serious: Yes (Hospitalization)
  Sender: FDA-Public Use
  Company Number: DE-MYLANLABS-2021M1020371

PATIENT
  Sex: Male

DRUGS (6)
  1. KETOCONAZOLE. [Suspect]
     Active Substance: KETOCONAZOLE
     Indication: PITUITARY-DEPENDENT CUSHING^S SYNDROME
     Route: 065
     Dates: start: 2012
  2. TEMOZOLOMIDE. [Suspect]
     Active Substance: TEMOZOLOMIDE
     Indication: PITUITARY-DEPENDENT CUSHING^S SYNDROME
     Dosage: UNK
     Route: 065
     Dates: start: 201301, end: 201304
  3. CAPECITABINE. [Suspect]
     Active Substance: CAPECITABINE
     Indication: NELSON^S SYNDROME
     Route: 065
     Dates: start: 201503, end: 201505
  4. METYRAPONE [Suspect]
     Active Substance: METYRAPONE
     Indication: NELSON^S SYNDROME
     Route: 065
     Dates: start: 2014
  5. TEMOZOLOMIDE. [Suspect]
     Active Substance: TEMOZOLOMIDE
     Indication: NELSON^S SYNDROME
     Dosage: UNK
     Route: 065
     Dates: start: 201503, end: 201505
  6. PASIREOTIDE. [Suspect]
     Active Substance: PASIREOTIDE
     Indication: PITUITARY-DEPENDENT CUSHING^S SYNDROME
     Route: 065
     Dates: start: 2012

REACTIONS (2)
  - Drug ineffective for unapproved indication [Unknown]
  - Off label use [Unknown]

NARRATIVE: CASE EVENT DATE: 2012
